FAERS Safety Report 9735031 (Version 1)
Quarter: 2013Q4

REPORT INFORMATION
  Report Type: Spontaneous
  Country: US (occurrence: None)
  Receive Date: 20131204
  Receipt Date: 20131204
  Transmission Date: 20140711
  Serious: Yes (Death)
  Sender: FDA-Public Use
  Company Number: US-ALKEM-000297

PATIENT
  Age: 47 Year
  Sex: Female

DRUGS (7)
  1. GABAPENTIN (GABAPENTIN) [Suspect]
     Route: 048
  2. LISINOPRIL (LISINOPRIL) [Suspect]
     Route: 048
  3. CITALOPRAM (CITALOPRAM) [Suspect]
     Route: 048
  4. IRON [Suspect]
     Route: 048
  5. MODAFINIL [Suspect]
     Route: 048
  6. TRAZODONE (TRAZODONE) [Suspect]
     Route: 048
  7. ACETAMINOPHEN W/ OXYCODONE [Suspect]
     Route: 048

REACTIONS (2)
  - Exposure via ingestion [None]
  - Adverse drug reaction [None]
